FAERS Safety Report 8257285-3 (Version None)
Quarter: 2012Q2

REPORT INFORMATION
  Report Type: 
  Country: None (occurrence: None)
  Receive Date: 20120403
  Receipt Date: 20120323
  Transmission Date: 20120825
  Serious: Yes (Other)
  Sender: FDA-Public Use
  Company Number: CA-JNJFOC-20120312619

PATIENT
  Sex: Female
  Weight: 104.5 kg

DRUGS (6)
  1. RANITIDINE [Concomitant]
     Route: 065
  2. REMICADE [Suspect]
     Route: 042
     Dates: start: 20110101
  3. LEVOTHYROXINE SODIUM [Concomitant]
     Route: 065
  4. REMICADE [Suspect]
     Indication: CROHN'S DISEASE
     Route: 042
     Dates: start: 20120326
  5. IMURAN [Concomitant]
     Route: 048
  6. REMICADE [Suspect]
     Route: 042

REACTIONS (5)
  - SKIN DISCOLOURATION [None]
  - WEIGHT INCREASED [None]
  - RASH [None]
  - DYSPNOEA EXERTIONAL [None]
  - JOINT SWELLING [None]
